FAERS Safety Report 20428355 (Version 1)
Quarter: 2022Q1

REPORT INFORMATION
  Report Type: Spontaneous
  Country: IT (occurrence: IT)
  Receive Date: 20220204
  Receipt Date: 20220204
  Transmission Date: 20220423
  Serious: Yes (Other)
  Sender: FDA-Public Use
  Company Number: IT-RECORDES-2019007910

PATIENT
  Age: 3 Year
  Sex: Male

DRUGS (2)
  1. POLYETHYLENE GLYCOLS [Suspect]
     Active Substance: POLYETHYLENE GLYCOLS
     Indication: Constipation
     Dosage: UNK UP TO 5 G/KG DAILY
     Route: 065
  2. VITAMIN D [Suspect]
     Active Substance: VITAMIN D NOS
     Indication: Product used for unknown indication
     Dosage: UNK (VITAMIN D WAS TRITATED)
     Route: 065

REACTIONS (2)
  - Faecaloma [Recovered/Resolved]
  - Therapy non-responder [Recovered/Resolved]
